FAERS Safety Report 9617626 (Version 1)
Quarter: 2013Q4

REPORT INFORMATION
  Report Type: Spontaneous
  Country: US (occurrence: US)
  Receive Date: 20131011
  Receipt Date: 20131011
  Transmission Date: 20140711
  Serious: No
  Sender: FDA-Public Use
  Company Number: US-BAYER-2013-123022

PATIENT
  Sex: Male

DRUGS (2)
  1. ALEVE CAPLET [Suspect]
     Dosage: 1 DF, ONCE
     Route: 048
     Dates: start: 2012, end: 2012
  2. ALEVE CAPLET [Suspect]
     Dosage: 1 DF, ONCE
     Route: 048
     Dates: start: 20131009, end: 20131009

REACTIONS (5)
  - Expired drug administered [None]
  - Rash macular [Recovered/Resolved]
  - Pruritus generalised [Recovered/Resolved]
  - Rash macular [Not Recovered/Not Resolved]
  - Pruritus generalised [Not Recovered/Not Resolved]
